FAERS Safety Report 15243465 (Version 1)
Quarter: 2018Q3

REPORT INFORMATION
  Report Type: Spontaneous
  Country: US (occurrence: US)
  Receive Date: 20180712
  Receipt Date: 20180712
  Transmission Date: 20181010
  Serious: Yes (Hospitalization)
  Sender: FDA-Public Use
  Company Number: None

PATIENT
  Age: 68 Year
  Sex: Female

DRUGS (16)
  1. SILDENAFIL. [Suspect]
     Active Substance: SILDENAFIL
     Indication: PULMONARY HYPERTENSION
     Route: 048
     Dates: start: 20171010
  2. FUROSEMIDE. [Concomitant]
     Active Substance: FUROSEMIDE
  3. SIMVASTIN [Concomitant]
     Active Substance: SIMVASTATIN
  4. TORSEMIDE. [Concomitant]
     Active Substance: TORSEMIDE
  5. MAG OXIDE [Concomitant]
     Active Substance: MAGNESIUM OXIDE
  6. DILITIAZEM [Concomitant]
     Active Substance: DILTIAZEM
  7. XARELTO [Concomitant]
     Active Substance: RIVAROXABAN
  8. MULTIVITAMIN [Concomitant]
     Active Substance: VITAMINS
  9. LOSARTAN. [Concomitant]
     Active Substance: LOSARTAN
  10. METOPROLOL TARTRATE. [Concomitant]
     Active Substance: METOPROLOL TARTRATE
  11. TYLENOL [Concomitant]
     Active Substance: ACETAMINOPHEN
  12. POTASSIUM [Concomitant]
     Active Substance: POTASSIUM
  13. POT CL MICRO [Concomitant]
  14. BRO ELLIPTA [Concomitant]
  15. PAROXETINE. [Concomitant]
     Active Substance: PAROXETINE
  16. IRON [Concomitant]
     Active Substance: IRON

REACTIONS (2)
  - Drug dose omission [None]
  - Oedema [None]

NARRATIVE: CASE EVENT DATE: 20180710
